FAERS Safety Report 4666363-7 (Version None)
Quarter: 2005Q2

REPORT INFORMATION
  Report Type: 
  Country: None (occurrence: None)
  Receive Date: 20050519
  Receipt Date: 20050228
  Transmission Date: 20051028
  Serious: Yes (Other)
  Sender: FDA-Public Use
  Company Number: US-BRISTOL-MYERS SQUIBB COMPANY-12879888

PATIENT
  Age: 9 Year
  Sex: Male

DRUGS (5)
  1. ABILIFY [Suspect]
     Indication: INTENTIONAL SELF-INJURY
     Dates: start: 20050209, end: 20050218
  2. CONCERTA [Concomitant]
     Indication: ATTENTION DEFICIT/HYPERACTIVITY DISORDER
     Dates: start: 20040101
  3. CLONIDINE [Concomitant]
     Indication: AGGRESSION
     Dates: start: 20040401
  4. MIRALAX [Concomitant]
  5. SENOKOT [Concomitant]

REACTIONS (10)
  - DROOLING [None]
  - DRUG INTERACTION [None]
  - DYSARTHRIA [None]
  - DYSKINESIA [None]
  - FEELING ABNORMAL [None]
  - HYPOKINESIA [None]
  - MYDRIASIS [None]
  - PUPILLARY REFLEX IMPAIRED [None]
  - SPEECH DISORDER [None]
  - VISION BLURRED [None]
